FAERS Safety Report 22014104 (Version 1)
Quarter: 2023Q1

REPORT INFORMATION
  Report Type: Spontaneous
  Country: US (occurrence: US)
  Receive Date: 20230221
  Receipt Date: 20230221
  Transmission Date: 20230418
  Serious: No
  Sender: FDA-Public Use
  Company Number: US-SA-SAC20230216000411

PATIENT
  Age: 22 Year
  Sex: Male

DRUGS (5)
  1. THYMOGLOBULIN [Suspect]
     Active Substance: LAPINE T-LYMPHOCYTE IMMUNE GLOBULIN
     Indication: Liver transplant
     Dosage: 280 MG; 33 MG/HR, FUTURE VIA PICC WITH NO ACUTE SYMPTOMS GIVEN OVER 12 HOURS (50 MG/12HRS AND 100 MG
     Route: 042
     Dates: start: 20230201, end: 20230206
  2. HEPARIN [Concomitant]
     Active Substance: HEPARIN SODIUM
  3. BENADRYL [Concomitant]
     Active Substance: DIPHENHYDRAMINE HYDROCHLORIDE
  4. METHYLPREDNISOLONE [Concomitant]
     Active Substance: METHYLPREDNISOLONE
  5. APAP [Concomitant]
     Active Substance: ACETAMINOPHEN

REACTIONS (11)
  - Joint stiffness [Recovered/Resolved]
  - Musculoskeletal stiffness [Recovered/Resolved]
  - Chest discomfort [Recovered/Resolved]
  - Aphonia [Recovered/Resolved]
  - Muscle discomfort [Recovered/Resolved]
  - Peripheral swelling [Recovered/Resolved]
  - Joint swelling [Recovered/Resolved]
  - Gait disturbance [Recovered/Resolved]
  - Pain [Recovered/Resolved]
  - Hypertension [Recovered/Resolved]
  - Serum sickness-like reaction [Recovered/Resolved]

NARRATIVE: CASE EVENT DATE: 20230201
